FAERS Safety Report 18257376 (Version 2)
Quarter: 2020Q4

REPORT INFORMATION
  Report Type: Spontaneous
  Country: US (occurrence: US)
  Receive Date: 20200911
  Receipt Date: 20201001
  Transmission Date: 20210113
  Serious: Yes (Hospitalization, Other)
  Sender: FDA-Public Use
  Company Number: US-ASTRAZENECA-2020SF13633

PATIENT
  Age: 54 Year
  Sex: Female
  Weight: 111.1 kg

DRUGS (16)
  1. LEVOTHYROXINE. [Concomitant]
     Active Substance: LEVOTHYROXINE
     Indication: THYROID DISORDER
  2. PILOCARPINE HCL [Concomitant]
     Active Substance: PILOCARPINE HYDROCHLORIDE
     Indication: DRY MOUTH
  3. OXYCODONE [Concomitant]
     Active Substance: OXYCODONE
     Indication: PAIN
  4. PREGABALIN. [Concomitant]
     Active Substance: PREGABALIN
     Indication: NEURALGIA
     Dates: start: 2013
  5. IRON [Concomitant]
     Active Substance: IRON
     Indication: LUPUS CYSTITIS
     Dates: start: 2008
  6. FUROSEMIDE. [Concomitant]
     Active Substance: FUROSEMIDE
     Indication: CARDIAC FAILURE CONGESTIVE
  7. TYLENOL [Concomitant]
     Active Substance: ACETAMINOPHEN
     Indication: PAIN
  8. TRAZODONE [Concomitant]
     Active Substance: TRAZODONE HYDROCHLORIDE
     Indication: INSOMNIA
     Dates: start: 2007
  9. HYDROXYCHLOROQUINE [Concomitant]
     Active Substance: HYDROXYCHLOROQUINE
     Indication: LUPUS CYSTITIS
     Dates: start: 2007
  10. ATORVASTATIN [Concomitant]
     Active Substance: ATORVASTATIN
  11. CETIRIZINE [Concomitant]
     Active Substance: CETIRIZINE HYDROCHLORIDE
     Indication: SINUS DISORDER
     Dosage: 2.0MG UNKNOWN
  12. ELAQUIS [Concomitant]
     Indication: THROMBOSIS
     Dates: start: 202008
  13. BYDUREON BCISE [Suspect]
     Active Substance: EXENATIDE
     Indication: DIABETES MELLITUS
     Route: 058
     Dates: start: 2015
  14. TRAZODONE [Concomitant]
     Active Substance: TRAZODONE HYDROCHLORIDE
     Indication: DEPRESSION
     Dates: start: 2007
  15. MONTELUKAST SOD [Concomitant]
     Active Substance: MONTELUKAST SODIUM
     Indication: HYPERSENSITIVITY
     Dates: start: 2008
  16. CYCLOBENZAPRINE. [Concomitant]
     Active Substance: CYCLOBENZAPRINE
     Indication: MUSCLE SPASMS

REACTIONS (11)
  - Wrong technique in device usage process [Unknown]
  - Fall [Unknown]
  - Osteomyelitis [Unknown]
  - Cellulitis [Unknown]
  - Synovial cyst [Unknown]
  - Thrombosis [Unknown]
  - International normalised ratio increased [Unknown]
  - Weight increased [Not Recovered/Not Resolved]
  - Incision site impaired healing [Unknown]
  - Peripheral swelling [Unknown]
  - Device issue [Unknown]

NARRATIVE: CASE EVENT DATE: 2019
